FAERS Safety Report 4663538-8 (Version None)
Quarter: 2005Q2

REPORT INFORMATION
  Report Type: 
  Country: None (occurrence: None)
  Receive Date: 20050517
  Receipt Date: 20050509
  Transmission Date: 20051028
  Serious: Yes (Hospitalization)
  Sender: FDA-Public Use
  Company Number: FR-GLAXOSMITHKLINE-B0380340A

PATIENT
  Age: 37 Year
  Sex: Male

DRUGS (2)
  1. ZOVIRAX [Suspect]
     Dosage: 200MG FOUR TIMES PER DAY
     Route: 048
  2. AOTAL [Concomitant]

REACTIONS (1)
  - BIPOLAR DISORDER [None]
